FAERS Safety Report 7675334-8 (Version None)
Quarter: 2011Q3

REPORT INFORMATION
  Report Type: 
  Country: None (occurrence: None)
  Receive Date: 20110810
  Receipt Date: 20110801
  Transmission Date: 20111222
  Serious: Yes (Hospitalization, Other)
  Sender: FDA-Public Use
  Company Number: US-AMGEN-USASP2011039021

PATIENT
  Age: 51 Year
  Sex: Female

DRUGS (1)
  1. ENBREL [Suspect]
     Indication: PSORIASIS
     Dosage: 50 MG, 2 TIMES/WK
     Dates: start: 20110715, end: 20110725

REACTIONS (5)
  - MEMORY IMPAIRMENT [None]
  - SEPSIS [None]
  - ESCHERICHIA INFECTION [None]
  - DEHYDRATION [None]
  - URINARY TRACT INFECTION [None]
